FAERS Safety Report 5568575-7 (Version None)
Quarter: 2007Q4

REPORT INFORMATION
  Report Type: 
  Country: None (occurrence: None)
  Receive Date: 20071220
  Receipt Date: 20071213
  Transmission Date: 20080405
  Serious: Yes (Other)
  Sender: FDA-Public Use
  Company Number: US-ROCHE-468438

PATIENT
  Age: 18 Year
  Sex: Female
  Weight: 77.1 kg

DRUGS (1)
  1. ACCUTANE [Suspect]
     Indication: ACNE
     Route: 048
     Dates: start: 19850101, end: 19870101

REACTIONS (13)
  - ANAEMIA [None]
  - ARTHRITIS [None]
  - BINOCULAR EYE MOVEMENT DISORDER [None]
  - CROHN'S DISEASE [None]
  - EMOTIONAL DISTRESS [None]
  - ERYTHEMA NODOSUM [None]
  - FISTULA [None]
  - HEADACHE [None]
  - INFLAMMATORY BOWEL DISEASE [None]
  - IRRITABLE BOWEL SYNDROME [None]
  - NODULE [None]
  - PYODERMA GANGRENOSUM [None]
  - TENDONITIS [None]
